FAERS Safety Report 4511301-0 (Version None)
Quarter: 2004Q4

REPORT INFORMATION
  Report Type: 
  Country: None (occurrence: None)
  Receive Date: 20041122
  Receipt Date: 20041106
  Transmission Date: 20050328
  Serious: Yes (Other)
  Sender: FDA-Public Use
  Company Number: USA-2004-0017587

PATIENT
  Age: 9 Year
  Sex: Male

DRUGS (4)
  1. MORPHINE SULFATE [Suspect]
     Dosage: 2 MG, DAILY, INTRAVENOUS
     Route: 042
  2. SEVOFLURANE [Suspect]
     Indication: NAUSEA
     Dosage: 8 MG, DAILY, INHALATION
     Route: 055
  3. SEVOFLURANE [Suspect]
     Indication: VOMITING
     Dosage: 8 MG, DAILY, INHALATION
     Route: 055
  4. NAVOBAN (TROPISETRON HYDROCHLORIDE) [Suspect]

REACTIONS (6)
  - CYANOSIS [None]
  - ERYTHEMA [None]
  - LARYNGOSPASM [None]
  - NAUSEA [None]
  - RESPIRATORY ARREST [None]
  - VOMITING [None]
